FAERS Safety Report 14334094 (Version 1)
Quarter: 2017Q4

REPORT INFORMATION
  Report Type: Spontaneous
  Country: GB (occurrence: GB)
  Receive Date: 20171228
  Receipt Date: 20171228
  Transmission Date: 20180321
  Serious: Yes (Life-Threatening, Hospitalization, Other)
  Sender: FDA-Public Use
  Company Number: GB-ELI_LILLY_AND_COMPANY-GB201712011899

PATIENT
  Age: 52 Year
  Sex: Female
  Weight: 80 kg

DRUGS (3)
  1. ARIPIPRAZOLE. [Suspect]
     Active Substance: ARIPIPRAZOLE
     Indication: BIPOLAR DISORDER
     Dosage: 15 MG, DAILY
     Route: 048
     Dates: end: 20160809
  2. OLANZAPINE. [Suspect]
     Active Substance: OLANZAPINE
     Dosage: 15 MG, DAILY
     Route: 048
     Dates: end: 20160809
  3. OLANZAPINE. [Suspect]
     Active Substance: OLANZAPINE
     Indication: BIPOLAR DISORDER
     Dosage: 10 MG, DAILY
     Route: 048

REACTIONS (10)
  - Uterine leiomyoma [Unknown]
  - Staphylococcal infection [Unknown]
  - Keratitis [Unknown]
  - Abnormal behaviour [Unknown]
  - Acute kidney injury [Unknown]
  - Hypotension [Unknown]
  - Adrenal mass [Unknown]
  - Acute psychosis [Unknown]
  - Neuroleptic malignant syndrome [Recovered/Resolved]
  - Vaginal haemorrhage [Unknown]

NARRATIVE: CASE EVENT DATE: 20160809
